FAERS Safety Report 16361958 (Version 1)
Quarter: 2019Q3

REPORT INFORMATION
  Report Type: Spontaneous
  Country: AU (occurrence: AU)
  Receive Date: 20190524
  Receipt Date: 20190524
  Transmission Date: 20191004
  Serious: Yes (Other)
  Sender: FDA-Public Use
  Company Number: None

PATIENT
  Age: 4 Year
  Sex: Female
  Weight: 18 kg

DRUGS (1)
  1. MONTELUKAS AS SODIUM 4MG CHEWABLE TABLET [Suspect]
     Active Substance: MONTELUKAST SODIUM
     Indication: ASTHMA
     Route: 048
     Dates: start: 20170801, end: 20190519

REACTIONS (16)
  - Nightmare [None]
  - Intentional self-injury [None]
  - Aggression [None]
  - Anxiety [None]
  - Depression [None]
  - Skin lesion [None]
  - Sinusitis [None]
  - Abnormal dreams [None]
  - Emotional distress [None]
  - Abdominal pain [None]
  - Eye irritation [None]
  - Insomnia [None]
  - Hallucination, visual [None]
  - Eczema [None]
  - Confusional state [None]
  - Hallucination, auditory [None]

NARRATIVE: CASE EVENT DATE: 20170822
